APPROVED DRUG PRODUCT: EXFORGE HCT
Active Ingredient: AMLODIPINE BESYLATE; HYDROCHLOROTHIAZIDE; VALSARTAN
Strength: EQ 10MG BASE;12.5MG;160MG
Dosage Form/Route: TABLET;ORAL
Application: N022314 | Product #003 | TE Code: AB
Applicant: NOVARTIS PHARMACEUTICALS CORP
Approved: Apr 30, 2009 | RLD: Yes | RS: No | Type: RX